FAERS Safety Report 22167453 (Version 5)
Quarter: 2023Q2

REPORT INFORMATION
  Report Type: Spontaneous
  Country: US (occurrence: US)
  Receive Date: 20230403
  Receipt Date: 20230427
  Transmission Date: 20230722
  Serious: Yes (Hospitalization, Other)
  Sender: FDA-Public Use
  Company Number: US-SA-SAC20230331000811

PATIENT
  Age: 20 Year
  Sex: Male

DRUGS (4)
  1. ELOCTATE [Suspect]
     Active Substance: EFMOROCTOCOG ALFA
     Indication: Factor VIII deficiency
     Dosage: 5000 U (4500-5500), BIW, AS NEEDED FOR BLEEDING
     Route: 041
     Dates: start: 201404
  2. ELOCTATE [Suspect]
     Active Substance: EFMOROCTOCOG ALFA
     Indication: Factor VIII deficiency
     Dosage: 5000 U (4500-5500), BIW, AS NEEDED FOR BLEEDING
     Route: 041
     Dates: start: 201404
  3. ELOCTATE [Suspect]
     Active Substance: EFMOROCTOCOG ALFA
     Dosage: 5000 U (4500-5500), BIW, AS NEEDED FOR BLEEDING
     Route: 041
     Dates: start: 201404
  4. ELOCTATE [Suspect]
     Active Substance: EFMOROCTOCOG ALFA
     Dosage: 5000 U (4500-5500), BIW, AS NEEDED FOR BLEEDING
     Route: 041
     Dates: start: 201404

REACTIONS (4)
  - Kidney infection [Unknown]
  - Dental operation [Unknown]
  - Epistaxis [Recovered/Resolved]
  - Mouth haemorrhage [Unknown]

NARRATIVE: CASE EVENT DATE: 20230101
